FAERS Safety Report 6200569-0 (Version None)
Quarter: 2009Q2

REPORT INFORMATION
  Report Type: 
  Country: None (occurrence: None)
  Receive Date: 20090522
  Receipt Date: 20080421
  Transmission Date: 20091009
  Serious: No
  Sender: FDA-Public Use
  Company Number: US-ALEXION-A200800096

PATIENT
  Sex: Female

DRUGS (11)
  1. SOLIRIS [Suspect]
     Indication: PAROXYSMAL NOCTURNAL HAEMOGLOBINURIA
     Dosage: 600 MG, SINGLE
     Route: 042
     Dates: start: 20080219, end: 20080219
  2. SOLIRIS [Suspect]
     Dosage: 600 MG, SINGLE
     Route: 042
     Dates: start: 20080226, end: 20080226
  3. SOLIRIS [Suspect]
     Dosage: 600 MG, SINGLE
     Route: 042
     Dates: start: 20080304, end: 20080304
  4. SOLIRIS [Suspect]
     Dosage: 600 MG, SINGLE
     Route: 042
     Dates: start: 20080311, end: 20080311
  5. SOLIRIS [Suspect]
     Dosage: 900 MG, SINGLE
     Route: 042
     Dates: start: 20080318, end: 20080318
  6. SOLIRIS [Suspect]
     Dosage: 900 MG, SINGLE
     Route: 042
     Dates: start: 20080401, end: 20080401
  7. SOLIRIS [Suspect]
     Dosage: 900 MG, SINGLE
     Route: 042
     Dates: start: 20080415, end: 20080415
  8. SOLIRIS [Suspect]
     Dosage: 900 MG, SINGLE
     Route: 042
     Dates: start: 20080429, end: 20080429
  9. SOLIRIS [Suspect]
     Dosage: 900 MG, SINGLE
     Route: 042
     Dates: start: 20080513, end: 20080513
  10. ATIVAN [Concomitant]
     Indication: PREMEDICATION
     Dosage: UNK, SINGLE
     Route: 048
     Dates: start: 20080304
  11. UNSPECIFIED [Concomitant]
     Indication: PREMEDICATION
     Dosage: UNK, SINGLE
     Route: 042
     Dates: start: 20080304

REACTIONS (6)
  - BACK PAIN [None]
  - COUGH [None]
  - CYSTITIS [None]
  - LOCALISED INFECTION [None]
  - PULMONARY CONGESTION [None]
  - PYREXIA [None]
